FAERS Safety Report 11844005 (Version 5)
Quarter: 2017Q2

REPORT INFORMATION
  Report Type: Spontaneous
  Country: US (occurrence: US)
  Receive Date: 20151217
  Receipt Date: 20170417
  Transmission Date: 20170829
  Serious: Yes (Hospitalization, Congenital Anomaly, Other)
  Sender: FDA-Public Use
  Company Number: PHEH2015US026029

PATIENT
  Sex: Male

DRUGS (1)
  1. ZOFRAN ODT [Suspect]
     Active Substance: ONDANSETRON HYDROCHLORIDE
     Indication: FOETAL EXPOSURE DURING PREGNANCY
     Route: 064

REACTIONS (23)
  - Congenital anomaly [Unknown]
  - Atrioventricular block second degree [Unknown]
  - Ear infection [Unknown]
  - Cardiac murmur [Unknown]
  - Heart disease congenital [Unknown]
  - Atrioventricular block complete [Unknown]
  - Bradycardia [Unknown]
  - Pain [Unknown]
  - Otitis media [Unknown]
  - Fatigue [Unknown]
  - Laevocardia [Unknown]
  - Syncope [Unknown]
  - Tricuspid valve incompetence [Unknown]
  - Mitral valve incompetence [Unknown]
  - Atrioventricular block [Unknown]
  - Anxiety [Unknown]
  - Foetal exposure during pregnancy [Unknown]
  - Arrhythmia [Unknown]
  - Ventricular hypertrophy [Unknown]
  - Right ventricular dilatation [Unknown]
  - Left ventricular dilatation [Unknown]
  - Anhedonia [Unknown]
  - Dyspnoea exertional [Unknown]

NARRATIVE: CASE EVENT DATE: 201210
